FAERS Safety Report 16935087 (Version 1)
Quarter: 2019Q4

REPORT INFORMATION
  Report Type: Spontaneous
  Country: CA (occurrence: CA)
  Receive Date: 20191018
  Receipt Date: 20191018
  Transmission Date: 20200122
  Serious: Yes (Life-Threatening, Other)
  Sender: FDA-Public Use
  Company Number: None

PATIENT
  Age: 35 Year
  Sex: Female
  Weight: 72 kg

DRUGS (3)
  1. NUVARING [Suspect]
     Active Substance: ETHINYL ESTRADIOL\ETONOGESTREL
     Indication: MENORRHAGIA
     Dosage: ?          QUANTITY:1 RING;OTHER FREQUENCY:ONCE A MONTH;?
     Route: 067
     Dates: start: 20161104, end: 20190908
  2. NUVARING [Suspect]
     Active Substance: ETHINYL ESTRADIOL\ETONOGESTREL
     Indication: BLOOD IRON DECREASED
     Dosage: ?          QUANTITY:1 RING;OTHER FREQUENCY:ONCE A MONTH;?
     Route: 067
     Dates: start: 20161104, end: 20190908
  3. RIVAROXIBAN [Concomitant]
     Active Substance: RIVAROXABAN

REACTIONS (3)
  - Back pain [None]
  - Complication associated with device [None]
  - Pulmonary embolism [None]

NARRATIVE: CASE EVENT DATE: 20190908
